FAERS Safety Report 6194742-8 (Version None)
Quarter: 2009Q2

REPORT INFORMATION
  Report Type: 
  Country: None (occurrence: None)
  Receive Date: 20090519
  Receipt Date: 20090512
  Transmission Date: 20091009
  Serious: Yes (Hospitalization)
  Sender: FDA-Public Use
  Company Number: US-BIOGENIDEC-2008BI007495

PATIENT
  Age: 58 Year
  Sex: Female
  Weight: 53 kg

DRUGS (3)
  1. AVONEX [Suspect]
     Indication: MULTIPLE SCLEROSIS
     Route: 030
     Dates: start: 20051201
  2. AVONEX [Suspect]
     Route: 030
     Dates: start: 20020729, end: 20051101
  3. METOPROLOL [Concomitant]
     Indication: HYPERTENSION
     Dates: end: 20080211

REACTIONS (19)
  - ANXIETY [None]
  - CONCUSSION [None]
  - CONDITION AGGRAVATED [None]
  - DEPRESSED MOOD [None]
  - DEPRESSION [None]
  - FALL [None]
  - GAIT DISTURBANCE [None]
  - HUMERUS FRACTURE [None]
  - HYPERKERATOSIS [None]
  - HYPERTENSION [None]
  - MULTIPLE SCLEROSIS [None]
  - MULTIPLE SCLEROSIS RELAPSE [None]
  - MUSCULAR WEAKNESS [None]
  - PANIC ATTACK [None]
  - PSYCHOTIC DISORDER [None]
  - SCRATCH [None]
  - SUPERFICIAL INJURY OF EYE [None]
  - THIRST [None]
  - TINEA INFECTION [None]
